FAERS Safety Report 5458441-X (Version None)
Quarter: 2007Q3

REPORT INFORMATION
  Report Type: 
  Country: None (occurrence: None)
  Receive Date: 20070919
  Receipt Date: 20070327
  Transmission Date: 20080115
  Serious: No
  Sender: FDA-Public Use
  Company Number: US-ASTRAZENECA-2007UW06123

PATIENT
  Age: 45 Year
  Sex: Female

DRUGS (12)
  1. SEROQUEL [Suspect]
     Indication: ANXIETY
     Route: 048
     Dates: start: 20070301, end: 20070315
  2. LEXAPRO [Suspect]
     Indication: DEPRESSION
     Route: 048
     Dates: start: 20070101, end: 20070301
  3. LEXAPRO [Suspect]
     Indication: ANXIETY
     Route: 048
     Dates: start: 20070101, end: 20070301
  4. LEXAPRO [Suspect]
     Route: 048
     Dates: start: 20061201, end: 20061201
  5. LEXAPRO [Suspect]
     Route: 048
     Dates: start: 20061201, end: 20061201
  6. LEXAPRO [Suspect]
     Dates: start: 20061201, end: 20070101
  7. LEXAPRO [Suspect]
     Dates: start: 20061201, end: 20070101
  8. LEXAPRO [Suspect]
     Dates: start: 20070301
  9. LEXAPRO [Suspect]
     Dates: start: 20070301
  10. RISPERDAL [Concomitant]
     Dates: start: 20070101, end: 20070301
  11. BENICAR [Concomitant]
  12. ATIVAN [Concomitant]

REACTIONS (4)
  - ANXIETY [None]
  - DRUG INTERACTION [None]
  - MUSCLE TWITCHING [None]
  - TREMOR [None]
